FAERS Safety Report 6638712-1 (Version None)
Quarter: 2010Q1

REPORT INFORMATION
  Report Type: 
  Country: None (occurrence: None)
  Receive Date: 20100316
  Receipt Date: 20100316
  Transmission Date: 20100710
  Serious: Yes (Other)
  Sender: FDA-Public Use
  Company Number: None

PATIENT
  Age: 8 Year
  Sex: Female
  Weight: 24.9478 kg

DRUGS (2)
  1. INTUNIV [Suspect]
     Indication: AGITATION
     Dosage: 1 MG ONCE DAILY PO
     Route: 048
     Dates: start: 20100208, end: 20100307
  2. INTUNIV [Suspect]
     Indication: AGITATION
     Dosage: 2 MG ONCE DAILY PO
     Route: 048
     Dates: start: 20100308, end: 20100309

REACTIONS (3)
  - AGITATION [None]
  - HOMICIDAL IDEATION [None]
  - SUICIDAL IDEATION [None]
